FAERS Safety Report 7724561-X (Version None)
Quarter: 2011Q3

REPORT INFORMATION
  Report Type: 
  Country: None (occurrence: None)
  Receive Date: 20110901
  Receipt Date: 20110823
  Transmission Date: 20111222
  Serious: Yes (Other)
  Sender: FDA-Public Use
  Company Number: US-ASTRAZENECA-2011SE43035

PATIENT
  Age: 67 Year
  Sex: Female
  Weight: 103.4 kg

DRUGS (14)
  1. CRESTOR [Suspect]
     Indication: HYPERCHOLESTEROLAEMIA
     Route: 048
     Dates: start: 20110701, end: 20110714
  2. ALLEGRA [Concomitant]
     Route: 048
  3. PRESS VISION [Concomitant]
     Route: 048
  4. LUTEIN [Concomitant]
     Route: 048
  5. PRILOSEC [Concomitant]
     Route: 048
  6. PROVENT [Concomitant]
  7. FLONASE [Concomitant]
     Dosage: 2 PUFFS DAILY
  8. T-CAP [Concomitant]
     Route: 048
  9. ANACIN [Concomitant]
     Route: 048
  10. ZANTAC [Concomitant]
     Route: 048
  11. ADVAIR DISKUS 100/50 [Concomitant]
     Dosage: 500/50
  12. LIPITOR [Concomitant]
     Route: 048
  13. NORVASC [Concomitant]
     Route: 048
  14. GLUCOSAMINE [Concomitant]
     Route: 048

REACTIONS (2)
  - DRY MOUTH [None]
  - HEADACHE [None]
